FAERS Safety Report 5468364-8 (Version None)
Quarter: 2007Q3

REPORT INFORMATION
  Report Type: 
  Country: None (occurrence: None)
  Receive Date: 20070926
  Receipt Date: 20070920
  Transmission Date: 20080115
  Serious: Yes (Hospitalization)
  Sender: FDA-Public Use
  Company Number: B0488285A

PATIENT
  Age: 17 Year
  Sex: Male

DRUGS (8)
  1. ZELITREX [Suspect]
     Dosage: 1UNIT TWICE PER DAY
     Route: 048
     Dates: start: 20070530
  2. FORTUM [Suspect]
     Dosage: 2G THREE TIMES PER DAY
     Route: 042
     Dates: start: 20070603
  3. CIFLOX [Suspect]
     Dosage: 250MG TWICE PER DAY
     Route: 048
     Dates: start: 20070606, end: 20070612
  4. CLOFARABINE [Suspect]
     Dosage: 52MGM2 PER DAY
     Dates: start: 20070608, end: 20070612
  5. AMIKLIN [Suspect]
     Dates: start: 20070609, end: 20070614
  6. TRIFLUCAN [Suspect]
     Dosage: 400MG PER DAY
     Route: 048
     Dates: start: 20070604
  7. PLITICAN [Suspect]
     Dates: start: 20070610
  8. ACETAMINOPHEN [Suspect]
     Dates: start: 20070606

REACTIONS (5)
  - ERYTHEMA [None]
  - OEDEMA PERIPHERAL [None]
  - PAIN IN EXTREMITY [None]
  - PRURIGO [None]
  - SKIN EXFOLIATION [None]
